FAERS Safety Report 9713321 (Version 2)
Quarter: 2014Q1

REPORT INFORMATION
  Report Type: Spontaneous
  Country: IN (occurrence: IN)
  Receive Date: 20131126
  Receipt Date: 20140103
  Transmission Date: 20141002
  Serious: Yes (Life-Threatening, Other)
  Sender: FDA-Public Use
  Company Number: IN-PFIZER INC-2013333468

PATIENT
  Age: 38 Year
  Sex: Female

DRUGS (2)
  1. ONDANSETRON HCL [Suspect]
     Dosage: 4 MG SLOWLY OVER 30 S
     Route: 042
  2. RANITIDINE [Suspect]
     Indication: PREMEDICATION
     Dosage: 50 MG, 45 MINS BEFORE SURGERY
     Route: 030

REACTIONS (3)
  - Cardiac arrest [Recovered/Resolved]
  - Unresponsive to stimuli [Recovered/Resolved]
  - Apnoeic attack [Recovered/Resolved]
